FAERS Safety Report 8145089-1 (Version None)
Quarter: 2012Q1

REPORT INFORMATION
  Report Type: 
  Country: None (occurrence: None)
  Receive Date: 20120217
  Receipt Date: 20120213
  Transmission Date: 20120608
  Serious: Yes (Hospitalization, Other)
  Sender: FDA-Public Use
  Company Number: PHHY2011CA39543

PATIENT
  Sex: Female
  Weight: 70 kg

DRUGS (8)
  1. HORMONES AND RELATED AGENTS [Concomitant]
  2. MIACALCIN [Concomitant]
     Dosage: 200 IU,
     Route: 045
  3. DIDROCAL [Concomitant]
     Dosage: 400 MG, QD
  4. CALCIUM [Concomitant]
     Dosage: 500 MG, BID
     Dates: start: 20010101
  5. ZOLEDRONOC ACID [Suspect]
     Dosage: 5 MG,
     Route: 042
     Dates: start: 20090811
  6. EVISTA [Concomitant]
     Dosage: 670 MG, QD
  7. FORTEO [Concomitant]
     Dosage: 20 MG, QD
  8. VITAMIN D [Concomitant]
     Dosage: 400 MG, BID
     Dates: start: 20010101

REACTIONS (3)
  - STERNAL FRACTURE [None]
  - RIB FRACTURE [None]
  - ACCIDENT [None]
